FAERS Safety Report 18092337 (Version 1)
Quarter: 2020Q3

REPORT INFORMATION
  Report Type: Spontaneous
  Country: AU (occurrence: AU)
  Receive Date: 20200730
  Receipt Date: 20200730
  Transmission Date: 20201103
  Serious: Yes (Life-Threatening)
  Sender: FDA-Public Use
  Company Number: AU-PFIZER INC-2020286348

PATIENT
  Age: 44 Year
  Sex: Male

DRUGS (15)
  1. PROMETHAZINE HCL [Suspect]
     Active Substance: PROMETHAZINE HYDROCHLORIDE
     Indication: SNAKE BITE
     Dosage: 25 MG
     Route: 042
  2. PROMETHAZINE HCL [Suspect]
     Active Substance: PROMETHAZINE HYDROCHLORIDE
     Indication: PROPHYLAXIS
  3. ADRENALINE [EPINEPHRINE] [Suspect]
     Active Substance: EPINEPHRINE
     Indication: SNAKE BITE
     Dosage: 0.25 MG
     Route: 058
  4. HYDROCORTISONE. [Suspect]
     Active Substance: HYDROCORTISONE
     Indication: SNAKE BITE
     Dosage: 100 MG
     Route: 042
  5. VECURONIUM [Suspect]
     Active Substance: VECURONIUM BROMIDE
     Indication: PROPHYLAXIS
  6. PREDNISONE. [Suspect]
     Active Substance: PREDNISONE
     Indication: SNAKE BITE
     Dosage: 50 MG, DAILY
  7. PREDNISONE. [Suspect]
     Active Substance: PREDNISONE
     Indication: PROPHYLAXIS
  8. THIOPENTAL [Suspect]
     Active Substance: THIOPENTAL
     Indication: SNAKE BITE
     Dosage: 125 MG
  9. VECURONIUM [Suspect]
     Active Substance: VECURONIUM BROMIDE
     Indication: SNAKE BITE
     Dosage: 4 MG
  10. DOPAMINE HCL [Suspect]
     Active Substance: DOPAMINE HYDROCHLORIDE
     Indication: SNAKE BITE
     Dosage: 200 MG (200 MG IN 100 ML AT 6 ML/H (INFUSION))
     Route: 042
  11. DOPAMINE HCL [Suspect]
     Active Substance: DOPAMINE HYDROCHLORIDE
     Indication: PROPHYLAXIS
  12. ADRENALINE [EPINEPHRINE] [Suspect]
     Active Substance: EPINEPHRINE
     Indication: PROPHYLAXIS
     Dosage: 0.2 MG
     Route: 042
  13. HYDROCORTISONE. [Suspect]
     Active Substance: HYDROCORTISONE
     Indication: PROPHYLAXIS
  14. THIOPENTAL [Suspect]
     Active Substance: THIOPENTAL
     Indication: PROPHYLAXIS
  15. ADRENALINE [EPINEPHRINE] [Suspect]
     Active Substance: EPINEPHRINE
     Dosage: 0.1 MG
     Route: 042

REACTIONS (1)
  - Drug ineffective [Recovered/Resolved]
